FAERS Safety Report 6824052-4 (Version None)
Quarter: 2010Q3

REPORT INFORMATION
  Report Type: 
  Country: None (occurrence: None)
  Receive Date: 20100708
  Receipt Date: 20061003
  Transmission Date: 20110219
  Serious: No
  Sender: FDA-Public Use
  Company Number: US-PFIZER INC-2006117553

PATIENT
  Sex: Female
  Weight: 83.46 kg

DRUGS (2)
  1. CHANTIX [Suspect]
     Indication: EX-TOBACCO USER
     Dates: start: 20060923, end: 20060925
  2. LEVOXYL [Concomitant]

REACTIONS (4)
  - HEADACHE [None]
  - NAUSEA [None]
  - RETCHING [None]
  - TERMINAL INSOMNIA [None]
